FAERS Safety Report 8429793-3 (Version None)
Quarter: 2012Q2

REPORT INFORMATION
  Report Type: 
  Country: None (occurrence: None)
  Receive Date: 20120612
  Receipt Date: 20120608
  Transmission Date: 20120825
  Serious: Yes (Death)
  Sender: FDA-Public Use
  Company Number: US-ASTRAZENECA-2012SE33444

PATIENT
  Age: 85 Year
  Sex: Male

DRUGS (10)
  1. BRILINTA [Suspect]
     Indication: ACUTE MYOCARDIAL INFARCTION
     Route: 048
     Dates: start: 20120520
  2. EFFIENT [Suspect]
     Route: 065
     Dates: end: 20120525
  3. OXYCODONE HCL [Concomitant]
  4. MORPHINE [Concomitant]
  5. ADVAIR DISKUS 100/50 [Concomitant]
  6. TOBRADEX [Concomitant]
     Route: 047
  7. LANTUS [Concomitant]
  8. PREDNISONE TAB [Concomitant]
  9. FUROSEMIDE [Concomitant]
  10. PLAVIX [Concomitant]

REACTIONS (4)
  - NAUSEA [None]
  - RESPIRATORY FAILURE [None]
  - ANOXIA [None]
  - CARDIAC ARREST [None]
